FAERS Safety Report 7412214-7 (Version None)
Quarter: 2011Q2

REPORT INFORMATION
  Report Type: 
  Country: None (occurrence: None)
  Receive Date: 20110413
  Receipt Date: 20110401
  Transmission Date: 20111010
  Serious: Yes (Hospitalization)
  Sender: FDA-Public Use
  Company Number: US-AMGEN-USASP2011017516

PATIENT
  Age: 54 Year
  Sex: Female

DRUGS (1)
  1. ENBREL [Suspect]
     Indication: RHEUMATOID ARTHRITIS
     Dosage: 50 MG, QWK
     Dates: start: 20090323, end: 20110201

REACTIONS (6)
  - RHEUMATOID ARTHRITIS [None]
  - DIVERTICULUM [None]
  - DIVERTICULITIS [None]
  - PROCEDURAL PAIN [None]
  - WEIGHT DECREASED [None]
  - POSTOPERATIVE ADHESION [None]
